FAERS Safety Report 10878114 (Version 1)
Quarter: 2015Q1

REPORT INFORMATION
  Report Type: Report from Study
  Country: US (occurrence: US)
  Receive Date: 20150302
  Receipt Date: 20150302
  Transmission Date: 20150721
  Serious: No
  Sender: FDA-Public Use
  Company Number: US-ABBVIE-14P-163-1216790-00

PATIENT
  Sex: Female
  Weight: 72.64 kg

DRUGS (2)
  1. UNKNOWN THYROID MEDICATION [Concomitant]
     Indication: HYPOTHYROIDISM
  2. ANDROGEL [Suspect]
     Active Substance: TESTOSTERONE
     Indication: EXPOSURE VIA PARTNER
     Dates: start: 201209

REACTIONS (2)
  - Blood testosterone increased [Not Recovered/Not Resolved]
  - Accidental exposure to product [Unknown]
